FAERS Safety Report 9141092 (Version 2)
Quarter: 2013Q2

REPORT INFORMATION
  Report Type: Spontaneous
  Country: US (occurrence: US)
  Receive Date: 20130305
  Receipt Date: 20130403
  Transmission Date: 20140414
  Serious: Yes (Death, Hospitalization)
  Sender: FDA-Public Use
  Company Number: US-B.I. PHARMACEUTICALS,INC./RIDGEFIELD-2013-BI-05546BP

PATIENT
  Age: 80 Year
  Sex: Female

DRUGS (4)
  1. PRADAXA [Suspect]
     Indication: ATRIAL FIBRILLATION
     Dosage: 150 MG
     Route: 048
  2. ASPIRIN [Concomitant]
     Dosage: 81 MG
  3. HYDROCODONE [Concomitant]
     Indication: PAIN
  4. OXYGEN [Concomitant]
     Indication: OXYGEN SUPPLEMENTATION

REACTIONS (3)
  - Myocardial infarction [Fatal]
  - Ischaemic stroke [Unknown]
  - Peripheral ischaemia [Unknown]
